FAERS Safety Report 13606772 (Version 3)
Quarter: 2018Q2

REPORT INFORMATION
  Report Type: Spontaneous
  Country: RU (occurrence: RU)
  Receive Date: 20170602
  Receipt Date: 20180531
  Transmission Date: 20180711
  Serious: Yes (Other)
  Sender: FDA-Public Use
  Company Number: RU-ASTRAZENECA-2017SE57484

PATIENT
  Age: 67 Year
  Sex: Female
  Weight: 70 kg

DRUGS (7)
  1. ACECARDOL [Concomitant]
     Active Substance: ASPIRIN
  2. VEROSPIRON [Concomitant]
     Active Substance: SPIRONOLACTONE
  3. OMEPRAZOLUM [Concomitant]
  4. LORISTA [Concomitant]
     Active Substance: LOSARTAN POTASSIUM
  5. BRILINTA [Suspect]
     Active Substance: TICAGRELOR
     Indication: MYOCARDIAL INFARCTION
     Route: 048
     Dates: start: 20170318, end: 201804
  6. BISOPROLOL [Concomitant]
     Active Substance: BISOPROLOL
  7. ATORIS [Concomitant]
     Active Substance: ATORVASTATIN CALCIUM

REACTIONS (4)
  - Lower limb fracture [Not Recovered/Not Resolved]
  - Intentional product misuse [Not Recovered/Not Resolved]
  - Musculoskeletal pain [Not Recovered/Not Resolved]
  - Oedema peripheral [Recovered/Resolved]

NARRATIVE: CASE EVENT DATE: 201703
